FAERS Safety Report 7383231-0 (Version None)
Quarter: 2011Q1

REPORT INFORMATION
  Report Type: 
  Country: None (occurrence: None)
  Receive Date: 20110330
  Receipt Date: 20110317
  Transmission Date: 20110831
  Serious: Yes (Hospitalization)
  Sender: FDA-Public Use
  Company Number: PHHY2011US21240

PATIENT
  Sex: Female

DRUGS (14)
  1. ZANTAC [Concomitant]
     Dosage: 75 MG, UNK
  2. EFFEXOR [Concomitant]
     Dosage: 75 MG, QD
  3. QUESTRAN [Concomitant]
     Dosage: 1 DF, QD
  4. ACULAR [Concomitant]
  5. MURO 128 [Concomitant]
  6. CALCIUM [Concomitant]
  7. VITAMIN D [Concomitant]
     Dosage: 2 DF, DAIY
  8. HYDROCHLOROTHIAZIDE [Concomitant]
     Dosage: UNK
  9. DILTIA XT [Concomitant]
     Dosage: 240 MG, UNK
  10. RESTASIS [Concomitant]
     Dosage: 1 DF, BID
  11. GABAPENTIN [Concomitant]
     Dosage: 300 MG, BID
  12. EXELON [Suspect]
     Indication: DEMENTIA
     Dosage: 4.6 MG, QD
     Route: 062
     Dates: start: 20101001, end: 20101001
  13. MEDROL [Concomitant]
     Dosage: 2 MG, QD
  14. CELEXA [Concomitant]
     Dosage: 40 MG, UNK

REACTIONS (5)
  - VOMITING [None]
  - DYSGEUSIA [None]
  - MALAISE [None]
  - DEHYDRATION [None]
  - DIARRHOEA [None]
